FAERS Safety Report 10172443 (Version 4)
Quarter: 2015Q1

REPORT INFORMATION
  Report Type: Spontaneous
  Country: US (occurrence: US)
  Receive Date: 20140515
  Receipt Date: 20150209
  Transmission Date: 20150720
  Serious: Yes (Hospitalization, Other)
  Sender: FDA-Public Use
  Company Number: US-BAYER-2014-071717

PATIENT
  Age: 37 Year
  Sex: Female
  Weight: 82 kg

DRUGS (1)
  1. MIRENA [Suspect]
     Active Substance: LEVONORGESTREL
     Indication: CONTRACEPTION
     Dosage: 20 MCG/24HR, CONT
     Route: 015
     Dates: start: 20070215, end: 20120213

REACTIONS (9)
  - Pelvic pain [Not Recovered/Not Resolved]
  - Medical device discomfort [Not Recovered/Not Resolved]
  - Medical device pain [None]
  - Uterine perforation [Not Recovered/Not Resolved]
  - Uterine scar [None]
  - Device dislocation [Not Recovered/Not Resolved]
  - Injury [Not Recovered/Not Resolved]
  - Cyst [None]
  - Genital haemorrhage [None]

NARRATIVE: CASE EVENT DATE: 201202
